FAERS Safety Report 5532543-1 (Version None)
Quarter: 2007Q4

REPORT INFORMATION
  Report Type: 
  Country: None (occurrence: None)
  Receive Date: 20071203
  Receipt Date: 20071127
  Transmission Date: 20080405
  Serious: No
  Sender: FDA-Public Use
  Company Number: US-BOEHRINGER INGELHEIM PHARMACEUTICALS, INC.-2007-BP-25174BP

PATIENT
  Sex: Male

DRUGS (10)
  1. SPIRIVA [Suspect]
     Indication: CHRONIC OBSTRUCTIVE PULMONARY DISEASE
     Route: 055
     Dates: start: 20060101
  2. HYDRALAZINE HCL [Concomitant]
  3. SIMVASTATIN [Concomitant]
     Indication: BLOOD CHOLESTEROL INCREASED
  4. DILTIAZEM [Concomitant]
     Indication: CHEST PAIN
  5. LOSARTAN POTASSIUM [Concomitant]
     Indication: HYPERTENSION
  6. TERAZOSIN HCL [Concomitant]
     Indication: BENIGN PROSTATIC HYPERPLASIA
  7. FLECAINIDE ACETATE [Concomitant]
     Indication: ARRHYTHMIA
  8. FUROSEMIDE [Concomitant]
  9. WARFARIN SODIUM [Concomitant]
  10. SPIRONOLACTONE [Concomitant]

REACTIONS (1)
  - NASOPHARYNGITIS [None]
